FAERS Safety Report 7760406-X (Version None)
Quarter: 2011Q3

REPORT INFORMATION
  Report Type: 
  Country: None (occurrence: None)
  Receive Date: 20110919
  Receipt Date: 20110915
  Transmission Date: 20111222
  Serious: Yes (Death)
  Sender: FDA-Public Use
  Company Number: PHEH2011US04217

PATIENT
  Sex: Female

DRUGS (4)
  1. GILENYA [Suspect]
     Dosage: 0.5 MG, QD
     Route: 048
  2. CHEMOTHERAPEUTICS NOS [Concomitant]
     Dosage: UNK
  3. TYSABRI [Concomitant]
  4. INTERFERONS [Concomitant]
     Dosage: UNK

REACTIONS (1)
  - RENAL FAILURE ACUTE [None]
